FAERS Safety Report 11226567 (Version 2)
Quarter: 2017Q2

REPORT INFORMATION
  Report Type: Report from Study
  Country: US (occurrence: US)
  Receive Date: 20150630
  Receipt Date: 20170619
  Transmission Date: 20170829
  Serious: Yes (Hospitalization, Disabling)
  Sender: FDA-Public Use
  Company Number: US-SA-2015SA033168

PATIENT
  Age: 27 Year
  Sex: Male

DRUGS (8)
  1. NEURONTIN [Concomitant]
     Active Substance: GABAPENTIN
  2. VESICARE [Concomitant]
     Active Substance: SOLIFENACIN SUCCINATE
  3. VITAMIN D3 [Concomitant]
     Active Substance: CHOLECALCIFEROL
  4. AUBAGIO [Suspect]
     Active Substance: TERIFLUNOMIDE
     Indication: MULTIPLE SCLEROSIS
     Route: 048
     Dates: start: 20130521, end: 20170606
  5. TIZANIDINE. [Concomitant]
     Active Substance: TIZANIDINE
  6. DIAZEPAM. [Concomitant]
     Active Substance: DIAZEPAM
  7. LEXAPRO [Concomitant]
     Active Substance: ESCITALOPRAM OXALATE
  8. LORTAB [Concomitant]
     Active Substance: ACETAMINOPHEN\HYDROCODONE BITARTRATE

REACTIONS (6)
  - Pain in extremity [Unknown]
  - Musculoskeletal disorder [Not Recovered/Not Resolved]
  - Bronchitis [Recovered/Resolved]
  - Cough [Recovered/Resolved]
  - Burning sensation [Unknown]
  - Muscular weakness [Not Recovered/Not Resolved]

NARRATIVE: CASE EVENT DATE: 20140220
